FAERS Safety Report 9376991 (Version 2)
Quarter: 2013Q3

REPORT INFORMATION
  Report Type: Spontaneous
  Country: IT (occurrence: IT)
  Receive Date: 20130701
  Receipt Date: 20130708
  Transmission Date: 20140515
  Serious: Yes (Other)
  Sender: FDA-Public Use
  Company Number: PHHY2013IT066876

PATIENT
  Age: 51 Year
  Sex: Female

DRUGS (5)
  1. TOLEP [Suspect]
     Indication: TRIGEMINAL NEURALGIA
     Dosage: 1 DF, DAILY
     Route: 048
     Dates: start: 20130508, end: 20130510
  2. OXYCONTIN [Suspect]
     Indication: TRIGEMINAL NEURALGIA
     Dosage: 1 DF, DAILY
     Route: 048
     Dates: start: 20130506, end: 20130510
  3. LYRICA [Suspect]
     Indication: TRIGEMINAL NEURALGIA
     Dosage: 3 DF, DAILY
     Route: 048
     Dates: start: 20130506, end: 20130510
  4. ENALAPRIL [Concomitant]
     Dosage: UNK UKN, UNK
     Route: 048
  5. LAROXYL [Concomitant]
     Dosage: UNK UKN, UNK
     Route: 048

REACTIONS (2)
  - Sopor [Unknown]
  - Abdominal pain [Unknown]
